FAERS Safety Report 10393311 (Version 2)
Quarter: 2014Q1

REPORT INFORMATION
  Report Type: Spontaneous
  Country: US (occurrence: None)
  Receive Date: 20120817
  Receipt Date: 20130815
  Transmission Date: 20141002
  Serious: Yes (Other)
  Sender: FDA-Public Use
  Company Number: ADR-2011-10608

PATIENT
  Age: 58 Year
  Sex: Male

DRUGS (4)
  1. LIORESAL [Suspect]
     Indication: POST LAMINECTOMY SYNDROME
  2. LIORESAL [Suspect]
     Indication: PAIN
  3. SUFENTANIL [Concomitant]
  4. BUPIVICAINE [Concomitant]

REACTIONS (3)
  - Therapeutic response decreased [None]
  - Pain [None]
  - Decreased activity [None]
